FAERS Safety Report 5535466-7 (Version None)
Quarter: 2007Q4

REPORT INFORMATION
  Report Type: 
  Country: None (occurrence: None)
  Receive Date: 20071206
  Receipt Date: 20071203
  Transmission Date: 20080405
  Serious: Yes (Hospitalization, Other)
  Sender: FDA-Public Use
  Company Number: FR-AVENTIS-200716169GDDC

PATIENT
  Age: 39 Year
  Sex: Female

DRUGS (8)
  1. AFLIBERCEPT [Suspect]
     Route: 042
     Dates: start: 20061206, end: 20061206
  2. TAXOTERE [Suspect]
     Route: 042
     Dates: start: 20061206, end: 20061206
  3. CISPLATIN [Suspect]
     Route: 042
     Dates: start: 20061206, end: 20061206
  4. SOLUPRED                           /00016201/ [Concomitant]
     Route: 048
     Dates: start: 20061115
  5. LARGACTIL                          /00011901/ [Concomitant]
     Indication: ANXIETY
     Route: 048
     Dates: start: 20061201
  6. ZOPHREN                            /00955301/ [Concomitant]
     Route: 048
     Dates: start: 20061115, end: 20070107
  7. METOCLOPRAMIDE HCL [Concomitant]
     Dates: start: 20061115, end: 20070107
  8. XANAX [Concomitant]
     Indication: ANXIETY
     Route: 048
     Dates: start: 20061201

REACTIONS (2)
  - COUGH [None]
  - LUNG DISORDER [None]
